FAERS Safety Report 5175561-8 (Version None)
Quarter: 2006Q4

REPORT INFORMATION
  Report Type: 
  Country: None (occurrence: None)
  Receive Date: 20061215
  Receipt Date: 20061207
  Transmission Date: 20070319
  Serious: Yes (Other)
  Sender: FDA-Public Use
  Company Number: US-JNJFOC-20060400676

PATIENT
  Sex: Female

DRUGS (1)
  1. ORTHO EVRA [Suspect]
     Indication: DRUG USE FOR UNKNOWN INDICATION
     Route: 062

REACTIONS (5)
  - AMAUROSIS FUGAX [None]
  - OCULAR HYPERTENSION [None]
  - OPTIC NEURITIS [None]
  - PAPILLITIS [None]
  - RETINAL ARTERY OCCLUSION [None]
